FAERS Safety Report 6198003-2 (Version None)
Quarter: 2009Q2

REPORT INFORMATION
  Report Type: 
  Country: None (occurrence: None)
  Receive Date: 20090515
  Receipt Date: 20090128
  Transmission Date: 20091009
  Serious: No
  Sender: FDA-Public Use
  Company Number: WAES 0901USA04175

PATIENT

DRUGS (1)
  1. ZOLINZA [Suspect]
     Dosage: 100/MG/PO
     Route: 048

REACTIONS (1)
  - HYPERSENSITIVITY [None]
